FAERS Safety Report 11129486 (Version 2)
Quarter: 2015Q2

REPORT INFORMATION
  Report Type: Spontaneous
  Country: BR (occurrence: BR)
  Receive Date: 20150521
  Receipt Date: 20150527
  Transmission Date: 20150821
  Serious: Yes (Death, Other)
  Sender: FDA-Public Use
  Company Number: BR-SHIRE-BR201504452

PATIENT
  Sex: Male

DRUGS (1)
  1. ELAPRASE [Suspect]
     Active Substance: IDURSULFASE
     Indication: MUCOPOLYSACCHARIDOSIS II
     Dosage: 0.5 MG/KG, 1X/WEEK
     Route: 041

REACTIONS (2)
  - Polyp [Unknown]
  - Respiratory failure [Fatal]

NARRATIVE: CASE EVENT DATE: 20150511
